FAERS Safety Report 25529408 (Version 4)
Quarter: 2025Q4

REPORT INFORMATION
  Report Type: Spontaneous
  Country: IN (occurrence: IN)
  Receive Date: 20250708
  Receipt Date: 20251009
  Transmission Date: 20260117
  Serious: Yes (Other)
  Sender: PFIZER
  Company Number: IN-PFIZER INC-PV202400116009

PATIENT
  Age: 38 Year
  Sex: Male

DRUGS (17)
  1. LORLATINIB [Suspect]
     Active Substance: LORLATINIB
     Indication: Lung adenocarcinoma
     Dosage: UNK
     Dates: start: 202407
  2. LORLATINIB [Suspect]
     Active Substance: LORLATINIB
     Dosage: 100 MG, 1X/DAY (ONCE 4 DAYS A WEEK)
     Route: 048
     Dates: start: 20240807
  3. LORLATINIB [Suspect]
     Active Substance: LORLATINIB
     Dosage: 100 MG, 1X/DAY(TAKEN AFTER BREAKFAST,TO BE TAKEN AT FIXED TIME OF DAY,DO NOT CRUSH, SWALLOW WHOLE)
     Route: 048
  4. LORLATINIB [Suspect]
     Active Substance: LORLATINIB
     Dosage: 75 MG
     Route: 048
  5. LORLATINIB [Suspect]
     Active Substance: LORLATINIB
     Dosage: 50 MG, 1X/DAY
     Route: 048
  6. LORLATINIB [Suspect]
     Active Substance: LORLATINIB
     Dosage: 75 MG, 1X/DAY (1 TAB OD TO BE TAKEN AFTER BREAKFAST)
     Route: 048
  7. LORLATINIB [Suspect]
     Active Substance: LORLATINIB
     Dosage: 100 MG, 1X/DAY TO BE TAKEN AFTER BREAKFAST
     Route: 048
  8. DENOSUMAB [Concomitant]
     Active Substance: DENOSUMAB
     Dosage: 120, MONTHLY (3 MONTHS)
     Route: 058
  9. DENOSUMAB [Concomitant]
     Active Substance: DENOSUMAB
     Dosage: 120 MG, Q3MONTHLY
     Route: 058
  10. ROSUVASTATIN CALCIUM [Concomitant]
     Active Substance: ROSUVASTATIN CALCIUM
     Dosage: 1 DF, 1X/DAY (BEDTIME)
  11. TRENTAL [Concomitant]
     Active Substance: PENTOXIFYLLINE
     Dosage: 400 MG, 2X/DAY
  12. CHOLECALCIFEROL [Concomitant]
     Active Substance: CHOLECALCIFEROL
     Dosage: 60000 IU, MONTHLY (WITH MILK)
  13. BECOSULES-Z [Concomitant]
     Dosage: 1 DF, 1X/DAY
  14. LEVESAM [Concomitant]
     Dosage: 500 MG, 2X/DAY
  15. RIVAROXABAN [Concomitant]
     Active Substance: RIVAROXABAN
     Dosage: 20 MG, 1X/DAY
  16. LEVALBUTEROL HYDROCHLORIDE [Concomitant]
     Active Substance: LEVALBUTEROL HYDROCHLORIDE
     Dosage: THRICE DAILY X4 WEEKS
     Route: 055
  17. BUDECORT RESPULES [Concomitant]
     Dosage: TWICE DAILY X 4 WEEKS
     Route: 055

REACTIONS (13)
  - Lung adenocarcinoma [Unknown]
  - Malignant neoplasm progression [Unknown]
  - Metastases to central nervous system [Unknown]
  - Pulmonary embolism [Unknown]
  - Behaviour disorder [Recovering/Resolving]
  - Memory impairment [Recovering/Resolving]
  - Hypoaesthesia [Not Recovered/Not Resolved]
  - Dysarthria [Recovering/Resolving]
  - Somnolence [Unknown]
  - Muscular weakness [Unknown]
  - Epistaxis [Unknown]
  - Lipids decreased [Unknown]
  - Off label use [Unknown]

NARRATIVE: CASE EVENT DATE: 20240823
